FAERS Safety Report 9702174 (Version 2)
Quarter: 2014Q1

REPORT INFORMATION
  Report Type: Report from Study
  Country: US (occurrence: US)
  Receive Date: 20131121
  Receipt Date: 20140304
  Transmission Date: 20141002
  Serious: Yes (Hospitalization)
  Sender: FDA-Public Use
  Company Number: US-VERTEX PHARMACEUTICALS INC-2013-011090

PATIENT
  Age: 31 Year
  Sex: Female
  Weight: 59 kg

DRUGS (19)
  1. VX-809 FDC [Suspect]
     Indication: CYSTIC FIBROSIS
     Dosage: 400 MG, Q 12HRS
     Route: 048
     Dates: start: 20130729, end: 20131114
  2. VX-809 FDC [Suspect]
     Dosage: 400 MG, Q 12 HRS
     Dates: start: 20131115
  3. VX-770 FDC [Suspect]
     Indication: CYSTIC FIBROSIS
     Dosage: 250 MG, Q 12HRS
     Route: 048
     Dates: start: 20130729, end: 20131114
  4. VX-770 FDC [Suspect]
     Dosage: 250 MG, Q 12HRS
     Route: 048
     Dates: start: 20131115
  5. ZYRTEC [Concomitant]
     Indication: SEASONAL ALLERGY
     Dosage: 10 MG, QD
     Route: 048
     Dates: start: 2000, end: 20131114
  6. NEXIUM [Concomitant]
     Indication: GASTROOESOPHAGEAL REFLUX DISEASE
     Dosage: 40 MG, QD
     Route: 048
     Dates: start: 2012, end: 20131114
  7. ALBUTEROL SULFATE [Concomitant]
     Indication: ASTHMA
     Dosage: 0.083% NEBULIZER BID
     Route: 055
     Dates: start: 1982, end: 20131114
  8. PULMOZYME [Concomitant]
     Indication: CYSTIC FIBROSIS LUNG
     Dosage: 2.5 MG, QD
     Route: 055
     Dates: start: 1993, end: 20131114
  9. HYPER SAL 7% [Concomitant]
     Indication: CYSTIC FIBROSIS LUNG
     Dosage: 1 AMPULE BID
     Route: 055
     Dates: start: 2005, end: 20131113
  10. CREON 24000 [Concomitant]
     Indication: PANCREATIC INSUFFICIENCY
     Dosage: 7 WITH MEALS, 6 WITH SNACKS
     Route: 048
     Dates: start: 2000, end: 20131114
  11. ADVAIR [Concomitant]
     Indication: ASTHMA
     Dosage: 500/50 BID
     Route: 055
     Dates: start: 2012, end: 20131113
  12. AZITHROMYCIN [Concomitant]
     Indication: CYSTIC FIBROSIS LUNG
     Dosage: 500 MG 3 X WEEK
     Route: 048
     Dates: start: 2004, end: 20131112
  13. CALCIUM [Concomitant]
     Indication: PANCREATIC INSUFFICIENCY
     Dosage: 600 MG, BID
     Route: 048
     Dates: start: 1995, end: 20131110
  14. IRON SULFATE [Concomitant]
     Indication: PANCREATIC INSUFFICIENCY
     Dosage: 325 MG, UNK
     Route: 048
     Dates: start: 1995, end: 20131110
  15. MULTIVITAMIN [Concomitant]
     Indication: PANCREATIC INSUFFICIENCY
     Dosage: 1 DF, QD
     Dates: start: 1995, end: 20131110
  16. NASONEX [Concomitant]
     Indication: RHINITIS ALLERGIC
     Dosage: UNK
     Route: 045
     Dates: start: 2005, end: 20131114
  17. SERTRALINE [Concomitant]
     Indication: DEPRESSION
     Dosage: 50 MG, QD
     Route: 048
     Dates: start: 2008, end: 20131114
  18. VENTOLIN HFA [Concomitant]
     Indication: ASTHMA
     Dosage: 2 PUFFS PRN
     Route: 055
     Dates: start: 1985, end: 20131111
  19. PANDEL [Concomitant]
     Indication: ECZEMA
     Dosage: UNK
     Route: 061
     Dates: end: 20131114

REACTIONS (1)
  - Ileus [Recovered/Resolved]
